FAERS Safety Report 17924213 (Version 6)
Quarter: 2020Q3

REPORT INFORMATION
  Report Type: Spontaneous
  Country: FR (occurrence: FR)
  Receive Date: 20200622
  Receipt Date: 20200821
  Transmission Date: 20201103
  Serious: Yes (Other)
  Sender: FDA-Public Use
  Company Number: FR-PFIZER INC-2020228717

PATIENT
  Age: 77 Year
  Sex: Female
  Weight: 81 kg

DRUGS (4)
  1. PRIMPERAN [Concomitant]
     Active Substance: METOCLOPRAMIDE HYDROCHLORIDE
     Indication: NAUSEA
     Dosage: 10 MG, AS NEEDED (10 MG, 3X/DAY AT MAXIMUM)
     Dates: start: 20200601
  2. IMODIUM [Concomitant]
     Active Substance: LOPERAMIDE HYDROCHLORIDE
     Indication: DIARRHOEA
     Dosage: 2 MG, AS NEEDED (2 CAPS AS LOADING DOSE THEN ONE CAP AFTER EACH LIQUID STOOL, MAX DOSE 8X/DAY)
     Dates: start: 20200601
  3. PRIMPERAN [Concomitant]
     Active Substance: METOCLOPRAMIDE HYDROCHLORIDE
     Indication: VOMITING
  4. IBRANCE [Suspect]
     Active Substance: PALBOCICLIB
     Dosage: 125 MG, CYCLIC (ONCE DAILY, 3 WEEKS OUT OF 4)
     Dates: start: 20200601

REACTIONS (18)
  - Decreased appetite [Unknown]
  - Abdominal discomfort [Unknown]
  - Rash [Unknown]
  - Abdominal pain [Unknown]
  - Vomiting [Unknown]
  - Epistaxis [Unknown]
  - Cataract [Unknown]
  - Neutropenia [Not Recovered/Not Resolved]
  - Diarrhoea [Unknown]
  - Dizziness [Unknown]
  - Thrombocytopenia [Unknown]
  - Fatigue [Unknown]
  - Anaemia [Unknown]
  - Dysgeusia [Unknown]
  - Gastrooesophageal reflux disease [Unknown]
  - Epistaxis [Unknown]
  - Nausea [Unknown]
  - Dry skin [Unknown]

NARRATIVE: CASE EVENT DATE: 2020
